FAERS Safety Report 6191699-0 (Version None)
Quarter: 2009Q2

REPORT INFORMATION
  Report Type: 
  Country: None (occurrence: None)
  Receive Date: 20090515
  Receipt Date: 20090511
  Transmission Date: 20091009
  Serious: Yes (Hospitalization)
  Sender: FDA-Public Use
  Company Number: BR-ASTRAZENECA-2009UW12179

PATIENT
  Age: 5 Year
  Sex: Female

DRUGS (3)
  1. LOSEC [Suspect]
     Indication: BARRETT'S OESOPHAGUS
     Route: 048
     Dates: start: 20090504
  2. LOSEC [Suspect]
     Route: 048
     Dates: start: 20090101, end: 20090504
  3. MOTILIUM [Concomitant]
     Route: 048
     Dates: start: 20040101

REACTIONS (3)
  - ABDOMINAL PAIN [None]
  - INFECTION [None]
  - PYREXIA [None]
